FAERS Safety Report 5489179-0 (Version None)
Quarter: 2007Q4

REPORT INFORMATION
  Report Type: 
  Country: None (occurrence: None)
  Receive Date: 20071018
  Receipt Date: 20061201
  Transmission Date: 20080405
  Serious: No
  Sender: FDA-Public Use
  Company Number: US-BRISTOL-MYERS SQUIBB COMPANY-13598164

PATIENT
  Sex: Female

DRUGS (1)
  1. MEGACE [Suspect]
     Indication: NEOPLASM
     Route: 048

REACTIONS (1)
  - WEIGHT INCREASED [None]
